FAERS Safety Report 24322519 (Version 1)
Quarter: 2024Q3

REPORT INFORMATION
  Report Type: Spontaneous
  Country: US (occurrence: US)
  Receive Date: 20240916
  Receipt Date: 20240916
  Transmission Date: 20241016
  Serious: No
  Sender: ALVOGEN
  Company Number: None

PATIENT

DRUGS (1)
  1. DEXTROAMPHET SACCHARAT, AMPHET ASPARTATE, DEXTROAMPHET SULFATE AND AMP [Suspect]
     Active Substance: AMPHETAMINE ASPARTATE\AMPHETAMINE SULFATE\DEXTROAMPHETAMINE SACCHARATE\DEXTROAMPHETAMINE SULFATE
     Indication: Product used for unknown indication
     Dosage: STRENGTH: 10 MG

REACTIONS (7)
  - Flat affect [Unknown]
  - Anxiety [Unknown]
  - Apathy [Unknown]
  - Disturbance in attention [Unknown]
  - Laziness [Unknown]
  - Irritability [Unknown]
  - Drug ineffective [Unknown]
